FAERS Safety Report 5032462-3 (Version None)
Quarter: 2006Q2

REPORT INFORMATION
  Report Type: 
  Country: None (occurrence: None)
  Receive Date: 20060622
  Receipt Date: 20060614
  Transmission Date: 20061013
  Serious: Yes (Other)
  Sender: FDA-Public Use
  Company Number: PHEH2006US07783

PATIENT
  Age: 8 Year
  Sex: Male

DRUGS (6)
  1. FOCALIN XR [Suspect]
     Indication: ATTENTION DEFICIT/HYPERACTIVITY DISORDER
     Dosage: 5 MG, QD
     Route: 048
     Dates: start: 20050101
  2. FOCALIN XR [Suspect]
     Dosage: 10 MG, QD
     Route: 048
     Dates: start: 20050101
  3. PREVACID [Concomitant]
     Indication: GASTROOESOPHAGEAL REFLUX DISEASE
     Dosage: 30-60 MG
  4. ADVAIR DISKUS 100/50 [Concomitant]
     Indication: HYPERSENSITIVITY
  5. FLONASE [Concomitant]
     Indication: HYPERSENSITIVITY
  6. ZYRTEC [Concomitant]
     Indication: HYPERSENSITIVITY

REACTIONS (4)
  - CEREBRAL PALSY [None]
  - NAUSEA [None]
  - OESOPHAGEAL PAIN [None]
  - VOMITING [None]
